FAERS Safety Report 5217872-3 (Version None)
Quarter: 2007Q1

REPORT INFORMATION
  Report Type: 
  Country: None (occurrence: None)
  Receive Date: 20061130
  Receipt Date: 20060918
  Transmission Date: 20070707
  Serious: Yes (Hospitalization)
  Sender: FDA-Public Use
  Company Number: US200607004296

PATIENT
  Age: 47 Year
  Sex: Female
  Weight: 47.2 kg

DRUGS (2)
  1. ZYPREXA [Suspect]
     Dosage: ORAL
     Route: 048
     Dates: start: 19960101, end: 20010101
  2. ESTRATEST [Concomitant]

REACTIONS (7)
  - BLOOD CHOLESTEROL ABNORMAL [None]
  - BLOOD TRIGLYCERIDES INCREASED [None]
  - DIABETES MELLITUS [None]
  - DIABETIC KETOACIDOSIS [None]
  - INSULIN RESISTANCE [None]
  - METABOLIC DISORDER [None]
  - VISION BLURRED [None]
